FAERS Safety Report 21614255 (Version 1)
Quarter: 2022Q4

REPORT INFORMATION
  Report Type: Spontaneous
  Country: US (occurrence: US)
  Receive Date: 20221118
  Receipt Date: 20221118
  Transmission Date: 20230112
  Serious: Yes (Hospitalization, Other)
  Sender: FDA-Public Use
  Company Number: US-SUN PHARMACEUTICAL INDUSTRIES LTD-2022R1-364584

PATIENT
  Age: 43 Year
  Sex: Female

DRUGS (2)
  1. ATORVASTATIN [Suspect]
     Active Substance: ATORVASTATIN
     Indication: Hypercholesterolaemia
     Dosage: 20 MILLIGRAM
     Route: 065
  2. FENOFIBRATE [Suspect]
     Active Substance: FENOFIBRATE
     Indication: Hypercholesterolaemia
     Dosage: 140 MILLIGRAM
     Route: 065

REACTIONS (4)
  - Cholestatic liver injury [Unknown]
  - Type IIa hyperlipidaemia [Not Recovered/Not Resolved]
  - Hepatic failure [Unknown]
  - Type V hyperlipidaemia [Unknown]
